FAERS Safety Report 18238914 (Version 2)
Quarter: 2020Q4

REPORT INFORMATION
  Report Type: Report from Study
  Country: CA (occurrence: CA)
  Receive Date: 20200907
  Receipt Date: 20201023
  Transmission Date: 20210113
  Serious: Yes (Other)
  Sender: FDA-Public Use
  Company Number: NVSC2020CA240932

PATIENT
  Age: 61 Year
  Sex: Female

DRUGS (4)
  1. BYL719 [Suspect]
     Active Substance: ALPELISIB
     Indication: BREAST CANCER
     Dosage: 300 MG, QD
     Route: 048
     Dates: start: 20200721, end: 20200804
  2. BYL719 [Suspect]
     Active Substance: ALPELISIB
     Indication: PIK3CA-ACTIVATED MUTATION
  3. FASLODEX [Concomitant]
     Active Substance: FULVESTRANT
     Indication: PRODUCT USED FOR UNKNOWN INDICATION
     Dosage: UNK
     Route: 065
  4. BYL719 [Suspect]
     Active Substance: ALPELISIB
     Indication: BREAST CANCER METASTATIC
     Dosage: 250 MG, QD
     Route: 048
     Dates: start: 20200824, end: 20200827

REACTIONS (4)
  - Lip swelling [Recovered/Resolved]
  - Dry mouth [Unknown]
  - Haemoglobin decreased [Unknown]
  - Hyperglycaemia [Recovering/Resolving]

NARRATIVE: CASE EVENT DATE: 20200730
